FAERS Safety Report 5164518-9 (Version None)
Quarter: 2006Q4

REPORT INFORMATION
  Report Type: 
  Country: None (occurrence: None)
  Receive Date: 20061127
  Receipt Date: 20061109
  Transmission Date: 20070319
  Serious: Yes (Death, Hospitalization)
  Sender: FDA-Public Use
  Company Number: 229535

PATIENT
  Age: 36 Year
  Sex: Male

DRUGS (2)
  1. RAPTIVA [Suspect]
     Indication: PSORIASIS
     Dosage: 0.6 ML, 1/WEEK
     Dates: start: 20050402, end: 20050811
  2. TOPICAL MEDICATIONS (GENERIC COMPONENTS) [Concomitant]

REACTIONS (40)
  - ABASIA [None]
  - ABNORMAL BEHAVIOUR [None]
  - ANAEMIA [None]
  - ANXIETY [None]
  - ARTHRITIS [None]
  - ASTHENIA [None]
  - ATROPHY [None]
  - BACK PAIN [None]
  - COGNITIVE DISORDER [None]
  - COMMUNICATION DISORDER [None]
  - CREUTZFELDT-JAKOB DISEASE [None]
  - ENCEPHALOPATHY [None]
  - FAECAL INCONTINENCE [None]
  - HYPERTONIA [None]
  - HYPERVIGILANCE [None]
  - HYPOAESTHESIA [None]
  - ILL-DEFINED DISORDER [None]
  - INCONTINENCE [None]
  - LABORATORY TEST ABNORMAL [None]
  - MASKED FACIES [None]
  - MOBILITY DECREASED [None]
  - MUSCLE SPASMS [None]
  - MYDRIASIS [None]
  - MYOCLONUS [None]
  - PARALYSIS [None]
  - PLATELET COUNT DECREASED [None]
  - PLATELET COUNT INCREASED [None]
  - POSTURE ABNORMAL [None]
  - PSYCHOTIC DISORDER [None]
  - PUPILLARY REFLEX IMPAIRED [None]
  - QUADRIPARESIS [None]
  - SENSORY LEVEL ABNORMAL [None]
  - SPEECH DISORDER [None]
  - SPINAL CORD DISORDER [None]
  - SPINAL OSTEOARTHRITIS [None]
  - TREMOR [None]
  - UNRESPONSIVE TO STIMULI [None]
  - URINARY INCONTINENCE [None]
  - WHEELCHAIR USER [None]
  - WHITE BLOOD CELL COUNT INCREASED [None]
